FAERS Safety Report 19896978 (Version 2)
Quarter: 2021Q4

REPORT INFORMATION
  Report Type: Report from Study
  Country: GB (occurrence: GB)
  Receive Date: 20210930
  Receipt Date: 20211005
  Transmission Date: 20220303
  Serious: Yes (Death, Other)
  Sender: FDA-Public Use
  Company Number: GB-BRISTOL-MYERS SQUIBB COMPANY-BMS-2021-099111

PATIENT
  Age: 66 Year
  Sex: Male
  Weight: 84.7 kg

DRUGS (13)
  1. NIVOLUMAB [Suspect]
     Active Substance: NIVOLUMAB
     Indication: Colorectal cancer
     Dosage: 480 MILLIGRAM
     Route: 065
     Dates: start: 20210407, end: 20210602
  2. ACETAMINOPHEN [Concomitant]
     Active Substance: ACETAMINOPHEN
     Indication: Headache
     Dosage: 500 MILLIGRAM, BID
     Route: 048
     Dates: start: 20190101
  3. ACETAMINOPHEN [Concomitant]
     Active Substance: ACETAMINOPHEN
     Indication: Back pain
     Dosage: 1 GRAM QDS
     Route: 048
     Dates: start: 202007
  4. ENOXAPARIN SODIUM [Concomitant]
     Active Substance: ENOXAPARIN SODIUM
     Indication: Pulmonary embolism
     Dosage: PREVIOUSLY ON INCREASED DOSE
     Route: 065
  5. ENOXAPARIN SODIUM [Concomitant]
     Active Substance: ENOXAPARIN SODIUM
     Dosage: 40 MILLIGRAM, QD AT NIGHT
     Route: 058
     Dates: start: 202101
  6. IBUPROFEN [Concomitant]
     Active Substance: IBUPROFEN
     Indication: Back pain
     Dosage: 200 MG TDS/PRN
     Route: 048
     Dates: start: 202007
  7. LANSOPRAZOLE [Concomitant]
     Active Substance: LANSOPRAZOLE
     Indication: Dyspepsia
     Dosage: 30 MILLIGRAM, QD
     Route: 048
     Dates: start: 2020
  8. LOPERAMIDE [Concomitant]
     Active Substance: LOPERAMIDE
     Indication: Prophylaxis against diarrhoea
     Dosage: 2 MG OD/PRN
     Route: 048
     Dates: start: 201904
  9. CALCIUM CARBONATE\CHOLECALCIFEROL [Concomitant]
     Active Substance: CALCIUM CARBONATE\CHOLECALCIFEROL
     Indication: Adverse event
     Dosage: 400 UNIT CACO3 1.5 GRAM OD
     Route: 048
     Dates: start: 20200421
  10. DENOSUMAB [Concomitant]
     Active Substance: DENOSUMAB
     Indication: Metastases to bone
     Dosage: 120 MG 4 TO 6 WEEKLY
     Route: 058
     Dates: start: 20200421
  11. BRONCHOSTOP [BROMHEXINE HYDROCHLORIDE] [Concomitant]
     Indication: Cough
     Dosage: 5 ML QOS/PRN
     Route: 048
     Dates: start: 202011
  12. COCODAMOL [Concomitant]
     Active Substance: ACETAMINOPHEN\CODEINE PHOSPHATE
     Indication: Pain
     Dosage: 8/500 MG 1 TAB TO 2 TAB PRN/QDS
     Route: 048
     Dates: start: 202101
  13. DEXAMETHASONE [Concomitant]
     Active Substance: DEXAMETHASONE
     Indication: Metastases to central nervous system
     Dosage: 8 MILLIGRAM, QD
     Route: 048
     Dates: start: 20210629

REACTIONS (1)
  - Pneumonia [Fatal]

NARRATIVE: CASE EVENT DATE: 20210918
